FAERS Safety Report 7628619-5 (Version None)
Quarter: 2011Q3

REPORT INFORMATION
  Report Type: 
  Country: None (occurrence: None)
  Receive Date: 20110722
  Receipt Date: 20110215
  Transmission Date: 20111222
  Serious: No
  Sender: FDA-Public Use
  Company Number: US-BAYER-2011-015448

PATIENT
  Age: 38 Year
  Sex: Male
  Weight: 79.365 kg

DRUGS (2)
  1. CARBAMAZEPINE [Concomitant]
     Dosage: 100 MG
  2. BETASERON [Suspect]
     Dosage: 0.25 MG, QOD
     Route: 058

REACTIONS (2)
  - PRURITUS [None]
  - DRY SKIN [None]
